FAERS Safety Report 8615769-X (Version None)
Quarter: 2012Q3

REPORT INFORMATION
  Report Type: 
  Country: None (occurrence: None)
  Receive Date: 20120823
  Receipt Date: 20120814
  Transmission Date: 20120928
  Serious: Yes (Other)
  Sender: FDA-Public Use
  Company Number: US-ROCHE-1061680

PATIENT
  Sex: Female
  Weight: 90.8 kg

DRUGS (2)
  1. ACCUTANE [Suspect]
     Indication: ACNE
     Dates: start: 19981201, end: 19990201
  2. TYLENOL [Concomitant]

REACTIONS (6)
  - CROHN'S DISEASE [None]
  - ALOPECIA [None]
  - ANAL FISSURE [None]
  - INFLAMMATORY BOWEL DISEASE [None]
  - POLYP [None]
  - DEPRESSION [None]
